FAERS Safety Report 9032511 (Version 2)
Quarter: 2013Q1

REPORT INFORMATION
  Report Type: Spontaneous
  Country: CN (occurrence: None)
  Receive Date: 20130108
  Receipt Date: 20130114
  Transmission Date: 20140127
  Serious: Yes (Other)
  Sender: FDA-Public Use
  Company Number: DSA_61714_2013

PATIENT
  Age: 47 Year
  Sex: Female

DRUGS (4)
  1. FLUOROURACIL (FLUOROURACIL) [Suspect]
     Indication: SIGNET-RING CELL CARCINOMA
  2. CALCIUM FOLINATE [Suspect]
     Indication: SIGNET-RING CELL CARCINOMA
  3. OXALIPLATIN (OXALIPLATIN) [Suspect]
     Indication: SIGNET-RING CELL CARCINOMA
     Route: 041
  4. CISPLATIN [Suspect]
     Indication: SIGNET-RING CELL CARCINOMA
     Route: 034

REACTIONS (6)
  - Bone marrow failure [None]
  - Decreased appetite [None]
  - Nausea [None]
  - Vomiting [None]
  - Cachexia [None]
  - Multi-organ failure [None]
